FAERS Safety Report 6495376-8 (Version None)
Quarter: 2009Q4

REPORT INFORMATION
  Report Type: 
  Country: None (occurrence: None)
  Receive Date: 20091214
  Receipt Date: 20090623
  Transmission Date: 20100525
  Serious: No
  Sender: FDA-Public Use
  Company Number: US-BRISTOL-MYERS SQUIBB COMPANY-14661516

PATIENT

DRUGS (3)
  1. ABILIFY [Suspect]
     Indication: AUTISM SPECTRUM DISORDER
     Dosage: TAKEN DOSES OF ARIPIPRAZOLE UPWARDS FROM 40MG
  2. ABILIFY [Suspect]
     Indication: ASPERGER'S DISORDER
     Dosage: TAKEN DOSES OF ARIPIPRAZOLE UPWARDS FROM 40MG
  3. ABILIFY [Suspect]
     Indication: BIPOLAR DISORDER
     Dosage: TAKEN DOSES OF ARIPIPRAZOLE UPWARDS FROM 40MG

REACTIONS (2)
  - DYSTONIA [None]
  - EXTRAPYRAMIDAL DISORDER [None]
